FAERS Safety Report 7591453-9 (Version None)
Quarter: 2011Q3

REPORT INFORMATION
  Report Type: 
  Country: None (occurrence: None)
  Receive Date: 20110701
  Receipt Date: 20110701
  Transmission Date: 20111222
  Serious: Yes (Other)
  Sender: FDA-Public Use
  Company Number: None

PATIENT
  Sex: Female

DRUGS (1)
  1. VALTREX [Suspect]
     Dosage: 1 TABLET BID PO
     Route: 048
     Dates: start: 20110614, end: 20110617

REACTIONS (3)
  - NECK PAIN [None]
  - DYSPNOEA [None]
  - PAINFUL DEFAECATION [None]
